FAERS Safety Report 23554525 (Version 1)
Quarter: 2024Q1

REPORT INFORMATION
  Report Type: Spontaneous
  Country: IN (occurrence: None)
  Receive Date: 20240222
  Receipt Date: 20240222
  Transmission Date: 20240410
  Serious: Yes (Hospitalization, Other)
  Sender: FDA-Public Use
  Company Number: 2024A041569

PATIENT
  Age: 48 Year
  Sex: Male

DRUGS (5)
  1. TICAGRELOR [Interacting]
     Active Substance: TICAGRELOR
     Route: 048
  2. ROSUVASTATIN [Interacting]
     Active Substance: ROSUVASTATIN
     Route: 048
  3. METOPROLOL [Concomitant]
     Active Substance: METOPROLOL
  4. ASPIRIN [Concomitant]
     Active Substance: ASPIRIN
  5. RAMIPRIL [Concomitant]
     Active Substance: RAMIPRIL

REACTIONS (5)
  - Rhabdomyolysis [Recovering/Resolving]
  - Acute kidney injury [Recovering/Resolving]
  - Drug interaction [Unknown]
  - Vitamin D deficiency [Recovering/Resolving]
  - Liver injury [Recovering/Resolving]
